FAERS Safety Report 8102664-8 (Version None)
Quarter: 2011Q4

REPORT INFORMATION
  Report Type: 
  Country: None (occurrence: None)
  Receive Date: 20111222
  Receipt Date: 20110907
  Transmission Date: 20120403
  Serious: Yes (Hospitalization)
  Sender: FDA-Public Use
  Company Number: UTC-010086

PATIENT
  Age: 29 Year
  Sex: Female
  Weight: 70.45 kg

DRUGS (3)
  1. TYVASO [Suspect]
     Indication: PULMONARY HYPERTENSION
     Dosage: 96 MCG (24 MCG, 4 IN 1 D), INHALATION
     Route: 055
     Dates: start: 20110420
  2. TRACLEER [Concomitant]
  3. ADCIRCA [Concomitant]

REACTIONS (3)
  - SURGERY [None]
  - DIALYSIS [None]
  - PNEUMONIA [None]
